FAERS Safety Report 9416870 (Version 1)
Quarter: 2013Q3

REPORT INFORMATION
  Report Type: Spontaneous
  Country: FR (occurrence: FR)
  Receive Date: 20130724
  Receipt Date: 20130724
  Transmission Date: 20140515
  Serious: Yes (Death, Hospitalization)
  Sender: FDA-Public Use
  Company Number: FR-RANBAXY-2005US-00724

PATIENT
  Age: 81 Year
  Sex: Female

DRUGS (7)
  1. CIPROFLOXACIN [Suspect]
     Indication: RESPIRATORY TRACT INFECTION
     Route: 065
  2. CELECOXIB [Suspect]
     Indication: PRODUCT USED FOR UNKNOWN INDICATION
     Route: 065
  3. FUROSEMIDE [Suspect]
     Indication: PRODUCT USED FOR UNKNOWN INDICATION
     Route: 042
  4. FUROSEMIDE [Suspect]
     Indication: PRODUCT USED FOR UNKNOWN INDICATION
     Dosage: UNK
     Route: 065
  5. RAMIPRIL [Suspect]
     Indication: PRODUCT USED FOR UNKNOWN INDICATION
     Route: 065
  6. NITROGLYCERIN [Suspect]
     Indication: CARDIAC FAILURE
     Dosage: UNK
     Route: 065
  7. AMOXICILLIN/CLAVULANIC ACID [Concomitant]
     Indication: RESPIRATORY TRACT INFECTION
     Route: 065

REACTIONS (1)
  - Renal failure acute [Fatal]
